FAERS Safety Report 6737323-7 (Version None)
Quarter: 2010Q2

REPORT INFORMATION
  Report Type: 
  Country: None (occurrence: None)
  Receive Date: 20100524
  Receipt Date: 20100515
  Transmission Date: 20101027
  Serious: Yes (Hospitalization)
  Sender: FDA-Public Use
  Company Number: US-SHIRE-ALL1-2010-02855

PATIENT

DRUGS (2)
  1. FOSRENOL [Suspect]
     Indication: HYPERPHOSPHATAEMIA
     Dosage: 500 MG, UNKNOWN
     Route: 048
  2. FOSRENOL [Suspect]

REACTIONS (3)
  - CONDITION AGGRAVATED [None]
  - RENAL FAILURE CHRONIC [None]
  - WRONG TECHNIQUE IN DRUG USAGE PROCESS [None]
